FAERS Safety Report 7709496-0 (Version None)
Quarter: 2011Q3

REPORT INFORMATION
  Report Type: 
  Country: None (occurrence: None)
  Receive Date: 20110825
  Receipt Date: 20110823
  Transmission Date: 20111222
  Serious: Yes (Hospitalization)
  Sender: FDA-Public Use
  Company Number: JP-ABBOTT-10P-087-0681059-00

PATIENT
  Sex: Male

DRUGS (4)
  1. COAGULATION FACTOR VIII [Concomitant]
     Indication: HAEMOPHILIA
     Dosage: 1000 UNIT, DAILY, 10 IN 1 MONTH
     Route: 042
  2. FOSAMPRENAVIR CALCIUM HYDRATE [Suspect]
     Indication: HIV INFECTION
     Route: 048
     Dates: start: 20081112
  3. NORVIR [Suspect]
     Indication: HIV INFECTION
     Dosage: 200 MG, DAILY
     Route: 048
     Dates: start: 20081112
  4. TRUVADA [Concomitant]
     Indication: HIV INFECTION
     Dosage: 1 TABLET, DAILY
     Route: 048
     Dates: start: 20081112

REACTIONS (2)
  - PAIN [None]
  - MUSCLE HAEMORRHAGE [None]
